FAERS Safety Report 22093790 (Version 1)
Quarter: 2023Q1

REPORT INFORMATION
  Report Type: Spontaneous
  Country: US (occurrence: None)
  Receive Date: 20230314
  Receipt Date: 20230314
  Transmission Date: 20230418
  Serious: No
  Sender: FDA-Public Use
  Company Number: None

PATIENT
  Age: 61 Year
  Sex: Female
  Weight: 68.54 kg

DRUGS (19)
  1. WELIREG [Suspect]
     Active Substance: BELZUTIFAN
     Indication: Neoplasm malignant
     Dosage: FREQUENCY : DAILY;?
     Route: 048
  2. ACETAMINOPOHEN [Concomitant]
  3. ADVAIR [Concomitant]
  4. CAYENNE PEPPER CAPS [Concomitant]
  5. IBUPROFEN [Concomitant]
  6. NAPROXEN [Concomitant]
  7. D-MANNOSE POWDER [Concomitant]
  8. FLAX SEED OIL [Concomitant]
  9. HEMP-TUMERIC CAPS [Concomitant]
  10. LORAZEPAM [Concomitant]
  11. METAMUCIL [Concomitant]
  12. METHOCARBAMOL [Concomitant]
  13. MULTIVITAMIN [Concomitant]
  14. MYCOPHENOLATE [Concomitant]
  15. RESTASIS [Concomitant]
  16. OMEPRAZOLE [Concomitant]
  17. SERTALINE [Concomitant]
  18. TUMS [Concomitant]
  19. VITAMIN D3 [Concomitant]

REACTIONS (5)
  - Bronchiectasis [None]
  - Visual impairment [None]
  - Cough [None]
  - Feeling cold [None]
  - Fatigue [None]
